FAERS Safety Report 4360438-8 (Version None)
Quarter: 2004Q2

REPORT INFORMATION
  Report Type: 
  Country: None (occurrence: None)
  Receive Date: 20040514
  Receipt Date: 20040505
  Transmission Date: 20050107
  Serious: Yes (Other)
  Sender: FDA-Public Use
  Company Number: 2004025366

PATIENT
  Sex: Female

DRUGS (2)
  1. NEURONTIN [Suspect]
     Indication: NEURITIS
     Dosage: 1500 MG (FOUR TIMES A DAY); ORAL
     Route: 048
     Dates: start: 20031027
  2. VICODIN [Concomitant]

REACTIONS (9)
  - AMNESIA [None]
  - DIFFICULTY IN WALKING [None]
  - DRUG INEFFECTIVE [None]
  - DYSPNOEA [None]
  - FEELING ABNORMAL [None]
  - NECK PAIN [None]
  - NEURALGIA [None]
  - PALPITATIONS [None]
  - POSTURE ABNORMAL [None]
